FAERS Safety Report 7252369-0 (Version None)
Quarter: 2011Q1

REPORT INFORMATION
  Report Type: 
  Country: None (occurrence: None)
  Receive Date: 20110129
  Receipt Date: 20100112
  Transmission Date: 20110831
  Serious: No
  Sender: FDA-Public Use
  Company Number: US-ABBOTT-10P-163-0619445-00

PATIENT
  Sex: Male
  Weight: 68.1 kg

DRUGS (3)
  1. HUMIRA [Suspect]
     Indication: ANKYLOSING SPONDYLITIS
     Dates: start: 20050101
  2. NAPROSEN [Concomitant]
     Indication: INFLAMMATION
  3. COZAAR [Concomitant]
     Indication: HYPERTENSION

REACTIONS (1)
  - ARTHRALGIA [None]
